FAERS Safety Report 8929330 (Version 1)
Quarter: 2012Q4

REPORT INFORMATION
  Report Type: Spontaneous
  Country: US (occurrence: None)
  Receive Date: 20121126
  Receipt Date: 20121126
  Transmission Date: 20130627
  Serious: Yes (Other)
  Sender: FDA-Public Use
  Company Number: None

PATIENT
  Age: 68 None
  Sex: Female
  Weight: 53.52 kg

DRUGS (3)
  1. LEVOFLOXACIN [Suspect]
     Indication: UTI
     Dosage: 750 mg A Day
     Dates: start: 20120928, end: 20121001
  2. LEVOFLOXACIN [Suspect]
     Indication: UTI
  3. LEVOFLOXACIN [Suspect]
     Indication: UTI

REACTIONS (4)
  - Musculoskeletal pain [None]
  - Joint crepitation [None]
  - Arthralgia [None]
  - Arthropathy [None]
